FAERS Safety Report 18334576 (Version 1)
Quarter: 2020Q4

REPORT INFORMATION
  Report Type: Spontaneous
  Country: TR (occurrence: TR)
  Receive Date: 20201001
  Receipt Date: 20201001
  Transmission Date: 20210113
  Serious: Yes (Hospitalization, Other)
  Sender: FDA-Public Use
  Company Number: TR-SCIEGEN-2020SCILIT00314

PATIENT
  Age: 54 Year
  Sex: Male

DRUGS (15)
  1. CLOZAPINE. [Concomitant]
     Active Substance: CLOZAPINE
  2. MOXIFLOXACIN. [Interacting]
     Active Substance: MOXIFLOXACIN
  3. QUETIAPINE. [Suspect]
     Active Substance: QUETIAPINE
  4. ARIPIPRAZOLE. [Concomitant]
     Active Substance: ARIPIPRAZOLE
  5. CLOZAPINE. [Concomitant]
     Active Substance: CLOZAPINE
  6. ARIPIPRAZOLE. [Concomitant]
     Active Substance: ARIPIPRAZOLE
  7. PIPERACILLIN/TAZOBACTAM [Interacting]
     Active Substance: PIPERACILLIN SODIUM\TAZOBACTAM SODIUM
     Indication: INTERSTITIAL LUNG DISEASE
     Route: 042
  8. MOXIFLOXACIN. [Interacting]
     Active Substance: MOXIFLOXACIN
     Indication: INTERSTITIAL LUNG DISEASE
     Dosage: 400 MG/DAY
     Route: 048
  9. QUETIAPINE. [Suspect]
     Active Substance: QUETIAPINE
     Indication: SCHIZOPHRENIA
     Dosage: 300 MG/DAY
     Route: 065
  10. CLOZAPINE. [Concomitant]
     Active Substance: CLOZAPINE
  11. ARIPIPRAZOLE. [Concomitant]
     Active Substance: ARIPIPRAZOLE
     Indication: SCHIZOPHRENIA
     Dosage: 20 MG/DAY
     Route: 065
  12. QUETIAPINE. [Suspect]
     Active Substance: QUETIAPINE
  13. CLOZAPINE. [Concomitant]
     Active Substance: CLOZAPINE
     Indication: SCHIZOPHRENIA
     Dosage: 350 MG/DAY
     Route: 065
  14. AMISULPRIDE [Concomitant]
     Active Substance: AMISULPRIDE
     Indication: SCHIZOPHRENIA
     Dosage: 800 MG/DAY
     Route: 065
  15. MOXIFLOXACIN. [Interacting]
     Active Substance: MOXIFLOXACIN

REACTIONS (1)
  - Interstitial lung disease [Recovered/Resolved]
